FAERS Safety Report 5902449-4 (Version None)
Quarter: 2008Q3

REPORT INFORMATION
  Report Type: 
  Country: None (occurrence: None)
  Receive Date: 20080929
  Receipt Date: 20080924
  Transmission Date: 20090109
  Serious: Yes (Life-Threatening)
  Sender: FDA-Public Use
  Company Number: JP-ASTRAZENECA-2008AP07508

PATIENT
  Age: 60 Year
  Sex: Male

DRUGS (2)
  1. DIPRIVAN [Suspect]
     Indication: INDUCTION OF ANAESTHESIA
     Dosage: DOSE UNKNOWN
     Route: 042
  2. MUSCULAX [Concomitant]
     Dosage: DOSE UNKNOWN
     Route: 042

REACTIONS (1)
  - SHOCK [None]
